FAERS Safety Report 12345788 (Version 1)
Quarter: 2016Q2

REPORT INFORMATION
  Report Type: Report from Study
  Country: US (occurrence: US)
  Receive Date: 20160509
  Receipt Date: 20160509
  Transmission Date: 20160815
  Serious: Yes (Death, Other)
  Sender: FDA-Public Use
  Company Number: US-GILEAD-2016-0212031

PATIENT
  Age: 77 Year
  Sex: Female

DRUGS (11)
  1. PREDNISOLONE. [Concomitant]
     Active Substance: PREDNISOLONE
  2. RANITIDINE. [Concomitant]
     Active Substance: RANITIDINE
  3. AMBRISENTAN [Suspect]
     Active Substance: AMBRISENTAN
     Indication: PULMONARY HYPERTENSION
     Dosage: 10 MG, QD
     Route: 065
     Dates: start: 20120713, end: 20160422
  4. VELETRI [Suspect]
     Active Substance: EPOPROSTENOL
     Indication: PRODUCT USED FOR UNKNOWN INDICATION
     Route: 065
  5. METOLAZONE. [Concomitant]
     Active Substance: METOLAZONE
  6. KLOR-CON [Concomitant]
     Active Substance: POTASSIUM CHLORIDE
  7. AZOPT [Concomitant]
     Active Substance: BRINZOLAMIDE
  8. DEXILANT [Concomitant]
     Active Substance: DEXLANSOPRAZOLE
  9. MAG-OX [Concomitant]
     Active Substance: MAGNESIUM OXIDE
  10. LASIX [Concomitant]
     Active Substance: FUROSEMIDE
  11. BENICAR [Concomitant]
     Active Substance: OLMESARTAN MEDOXOMIL

REACTIONS (4)
  - Pulmonary arterial hypertension [Fatal]
  - Death [Fatal]
  - Cardiac infection [Fatal]
  - Sarcoidosis [Fatal]

NARRATIVE: CASE EVENT DATE: 20160422
